FAERS Safety Report 12341228 (Version 1)
Quarter: 2016Q2

REPORT INFORMATION
  Report Type: Spontaneous
  Country: CA (occurrence: CA)
  Receive Date: 20160506
  Receipt Date: 20160506
  Transmission Date: 20160815
  Serious: Yes (Disabling, Other)
  Sender: FDA-Public Use
  Company Number: CA-SUNOVION-2016SUN001104

PATIENT
  Age: 66 Year
  Sex: Female
  Weight: 67 kg

DRUGS (5)
  1. METOPROLOL SUCCINATE. [Concomitant]
     Active Substance: METOPROLOL SUCCINATE
  2. CYMBALTA [Suspect]
     Active Substance: DULOXETINE HYDROCHLORIDE
     Indication: PRODUCT USED FOR UNKNOWN INDICATION
  3. TECTA [Concomitant]
     Active Substance: PANTOPRAZOLE MAGNESIUM
  4. LATUDA [Suspect]
     Active Substance: LURASIDONE HYDROCHLORIDE
     Indication: BIPOLAR I DISORDER
     Dosage: 80 MG, QD
     Route: 048
  5. TOLOXIN [Concomitant]
     Active Substance: DIGOXIN

REACTIONS (10)
  - Protrusion tongue [Unknown]
  - Hyperventilation [Unknown]
  - Abnormal behaviour [Unknown]
  - Insomnia [Unknown]
  - Extrapyramidal disorder [Unknown]
  - Restlessness [Unknown]
  - Masked facies [Unknown]
  - Swollen tongue [Unknown]
  - Tardive dyskinesia [Unknown]
  - Dyskinesia [Unknown]
